FAERS Safety Report 8484521-0 (Version None)
Quarter: 2012Q3

REPORT INFORMATION
  Report Type: 
  Country: None (occurrence: None)
  Receive Date: 20120703
  Receipt Date: 20120622
  Transmission Date: 20120928
  Serious: Yes (Hospitalization)
  Sender: FDA-Public Use
  Company Number: JP-NOVOPROD-354630

PATIENT
  Age: 74 Year
  Sex: Female

DRUGS (4)
  1. WARFARIN POTASSIUM [Concomitant]
  2. HEPARIN SODIUM [Concomitant]
  3. PENFILL R CHU [Suspect]
     Indication: DIABETES MELLITUS
     Dosage: UNK
     Route: 058
  4. ALTEPLASE [Concomitant]

REACTIONS (1)
  - ABDOMINAL WALL HAEMATOMA [None]
